FAERS Safety Report 7435926-8 (Version None)
Quarter: 2011Q2

REPORT INFORMATION
  Report Type: 
  Country: None (occurrence: None)
  Receive Date: 20110418
  Receipt Date: 20110406
  Transmission Date: 20111010
  Serious: Yes (Hospitalization, Other)
  Sender: FDA-Public Use
  Company Number: 027069

PATIENT
  Sex: Male

DRUGS (3)
  1. CIPRO [Concomitant]
  2. CIMZIA [Suspect]
     Indication: CROHN'S DISEASE
     Dosage: 400 MG 1X/4 WEEKS SUBCUTANEOUS
     Route: 058
     Dates: start: 20101013, end: 20110101
  3. FLAGYL [Concomitant]

REACTIONS (2)
  - ABDOMINAL ABSCESS [None]
  - COLECTOMY [None]
